FAERS Safety Report 24953576 (Version 1)
Quarter: 2025Q1

REPORT INFORMATION
  Report Type: Report from Study
  Country: US (occurrence: US)
  Receive Date: 20250211
  Receipt Date: 20250211
  Transmission Date: 20250408
  Serious: Yes (Death, Other)
  Sender: TAKEDA
  Company Number: US-TAKEDA-2025TUS013142

PATIENT
  Sex: Male

DRUGS (1)
  1. LANADELUMAB [Suspect]
     Active Substance: LANADELUMAB
     Indication: Hereditary angioedema
     Dosage: UNK UNK, Q2WEEKS

REACTIONS (2)
  - Death [Fatal]
  - Overdose [Unknown]
